FAERS Safety Report 10354321 (Version 1)
Quarter: 2014Q3

REPORT INFORMATION
  Report Type: Spontaneous
  Country: GB (occurrence: None)
  Receive Date: 20140729
  Receipt Date: 20140729
  Transmission Date: 20150326
  Serious: Yes (Hospitalization)
  Sender: FDA-Public Use
  Company Number: AUR-APL-2014-07955

PATIENT
  Age: 94 Year
  Sex: Female

DRUGS (4)
  1. ASPIRIN (ACETYLSALICYLIC ACID) [Concomitant]
     Active Substance: ASPIRIN
  2. SIMVASTATIN (SIMVASTATIN) [Concomitant]
     Active Substance: SIMVASTATIN
  3. ALENDRONIC ACID (ALENDRONIC ACID) [Concomitant]
     Active Substance: ALENDRONIC ACID
  4. RISPERIDONE. [Suspect]
     Active Substance: RISPERIDONE
     Indication: HALLUCINATION
     Route: 048
     Dates: start: 20140708

REACTIONS (1)
  - Lacunar infarction [None]

NARRATIVE: CASE EVENT DATE: 20140713
